FAERS Safety Report 6425740-4 (Version None)
Quarter: 2009Q4

REPORT INFORMATION
  Report Type: 
  Country: None (occurrence: None)
  Receive Date: 20091029
  Receipt Date: 20091016
  Transmission Date: 20100525
  Serious: Yes (Death, Hospitalization)
  Sender: FDA-Public Use
  Company Number: 2009AC000079

PATIENT
  Age: 29 Year
  Sex: Female

DRUGS (21)
  1. DIGOXIN [Suspect]
     Dosage: 0.125 MG; QD; PO
     Route: 048
     Dates: start: 20080311
  2. LASIX [Concomitant]
  3. K-DUR [Concomitant]
  4. SPIRONOLACTONE [Concomitant]
  5. TEQUIN [Concomitant]
  6. ROBITUSSIN [Concomitant]
  7. COREG [Concomitant]
  8. ZAROXOYN [Concomitant]
  9. LIPITOR [Concomitant]
  10. METOPROLOL [Concomitant]
  11. LISINOPRIL [Concomitant]
  12. KAY CIEL DURA-TABS [Concomitant]
  13. PRINIVIL [Concomitant]
  14. CARVEDILOL [Concomitant]
  15. METOLAZONE [Concomitant]
  16. POTASSIUM CHLORIDE [Concomitant]
  17. ZOLPIDEM [Concomitant]
  18. DIPYRIDAMOLE [Concomitant]
  19. MAG OXIDE [Concomitant]
  20. PROPA-N/APAP [Concomitant]
  21. RAMIPRIL [Concomitant]

REACTIONS (33)
  - ASTHENIA [None]
  - BACK PAIN [None]
  - BLOOD CHOLESTEROL INCREASED [None]
  - BRONCHITIS [None]
  - CARDIAC FAILURE [None]
  - CARDIAC FAILURE CONGESTIVE [None]
  - CHEST DISCOMFORT [None]
  - CLAUSTROPHOBIA [None]
  - DYSPNOEA [None]
  - FATIGUE [None]
  - FLANK PAIN [None]
  - HAIR GROWTH ABNORMAL [None]
  - HYPERTENSION [None]
  - INFERTILITY [None]
  - INFLUENZA LIKE ILLNESS [None]
  - INTRACARDIAC THROMBUS [None]
  - LOBAR PNEUMONIA [None]
  - MENSTRUATION IRREGULAR [None]
  - MULTIPLE INJURIES [None]
  - MYALGIA [None]
  - NAUSEA [None]
  - ORTHOPNOEA [None]
  - PALPITATIONS [None]
  - POLYCYSTIC OVARIES [None]
  - PRESYNCOPE [None]
  - RENAL CANCER [None]
  - SLEEP APNOEA SYNDROME [None]
  - SURGERY [None]
  - TUBERCULIN TEST POSITIVE [None]
  - URINARY INCONTINENCE [None]
  - URINARY TRACT INFECTION [None]
  - VOMITING [None]
  - WOUND INFECTION [None]
